FAERS Safety Report 17973430 (Version 4)
Quarter: 2021Q4

REPORT INFORMATION
  Report Type: Spontaneous
  Country: US (occurrence: US)
  Receive Date: 20200702
  Receipt Date: 20211125
  Transmission Date: 20220303
  Serious: Yes (Other)
  Sender: FDA-Public Use
  Company Number: US-GILEAD-2020-0478106

PATIENT
  Age: 52 Year
  Sex: Female

DRUGS (30)
  1. VIREAD [Suspect]
     Active Substance: TENOFOVIR DISOPROXIL FUMARATE
     Indication: HIV infection
     Dosage: UNK
     Route: 048
     Dates: start: 2003, end: 2006
  2. VIREAD [Suspect]
     Active Substance: TENOFOVIR DISOPROXIL FUMARATE
     Dosage: UNK
     Route: 048
     Dates: start: 20030217, end: 20051014
  3. TRUVADA [Suspect]
     Active Substance: EMTRICITABINE\TENOFOVIR DISOPROXIL FUMARATE
     Indication: HIV infection
     Dosage: UNK
     Route: 048
     Dates: start: 2006, end: 200609
  4. TRUVADA [Suspect]
     Active Substance: EMTRICITABINE\TENOFOVIR DISOPROXIL FUMARATE
     Dosage: UNK
     Route: 048
     Dates: start: 20051015, end: 20061012
  5. TRUVADA [Suspect]
     Active Substance: EMTRICITABINE\TENOFOVIR DISOPROXIL FUMARATE
     Dosage: UNK
     Route: 048
     Dates: start: 200510, end: 201210
  6. ATRIPLA [Suspect]
     Active Substance: EFAVIRENZ\EMTRICITABINE\TENOFOVIR DISOPROXIL FUMARATE
     Indication: HIV infection
     Dosage: UNK
     Route: 048
     Dates: start: 200610, end: 201203
  7. ATRIPLA [Suspect]
     Active Substance: EFAVIRENZ\EMTRICITABINE\TENOFOVIR DISOPROXIL FUMARATE
     Dosage: UNK
     Route: 048
     Dates: start: 20061003, end: 20121001
  8. COMPLERA [Suspect]
     Active Substance: EMTRICITABINE\RILPIVIRINE HYDROCHLORIDE\TENOFOVIR DISOPROXIL FUMARATE
     Indication: HIV infection
     Dosage: UNK
     Route: 048
     Dates: start: 201203, end: 201409
  9. COMPLERA [Suspect]
     Active Substance: EMTRICITABINE\RILPIVIRINE HYDROCHLORIDE\TENOFOVIR DISOPROXIL FUMARATE
     Dosage: UNK
     Route: 048
     Dates: start: 20121202, end: 20140917
  10. UROCIT-K [Concomitant]
     Active Substance: POTASSIUM CITRATE
     Dosage: UNK
     Dates: start: 2009, end: 2009
  11. AMILORIDE [Concomitant]
     Active Substance: AMILORIDE
     Dosage: UNK
     Route: 065
     Dates: start: 2014
  12. VITAMINS NOS [Concomitant]
     Active Substance: VITAMINS
     Dosage: UNK
     Dates: start: 202104
  13. ACETAMINOPHEN [Concomitant]
     Active Substance: ACETAMINOPHEN
  14. ACYCLOVIR [Concomitant]
     Active Substance: ACYCLOVIR
     Dosage: UNK
     Dates: start: 2013
  15. AMITRIPTYLINE [Concomitant]
     Active Substance: AMITRIPTYLINE
  16. AMOXICILLIN [Concomitant]
     Active Substance: AMOXICILLIN
  17. AMPICILLIN [Concomitant]
     Active Substance: AMPICILLIN
  18. ASPIRIN [Concomitant]
     Active Substance: ASPIRIN
  19. BACTRIM [Concomitant]
     Active Substance: SULFAMETHOXAZOLE\TRIMETHOPRIM
  20. CORTISONE [Concomitant]
     Active Substance: CORTISONE
  21. MORNIFLUMATE [Concomitant]
     Active Substance: MORNIFLUMATE
  22. FAMOTIDINE [Concomitant]
     Active Substance: FAMOTIDINE
  23. HEPARIN [Concomitant]
     Active Substance: HEPARIN SODIUM
  24. PENICILLIN [Concomitant]
     Active Substance: PENICILLIN
  25. WARFARIN [Concomitant]
     Active Substance: WARFARIN
  26. EPIVIR [Concomitant]
     Active Substance: LAMIVUDINE
  27. NORVIR [Concomitant]
     Active Substance: RITONAVIR
  28. SUSTIVA [Concomitant]
     Active Substance: EFAVIRENZ
  29. ZERIT [Concomitant]
     Active Substance: STAVUDINE
  30. GENTAMICIN [Concomitant]
     Active Substance: GENTAMICIN
     Dosage: UNK
     Dates: start: 2013, end: 2014

REACTIONS (7)
  - Chronic kidney disease [Not Recovered/Not Resolved]
  - Osteoporosis [Not Recovered/Not Resolved]
  - Fanconi syndrome acquired [Not Recovered/Not Resolved]
  - Emotional distress [Not Recovered/Not Resolved]
  - Bone density decreased [Unknown]
  - Pain [Not Recovered/Not Resolved]
  - Depression [Not Recovered/Not Resolved]

NARRATIVE: CASE EVENT DATE: 20140603
